FAERS Safety Report 5708167-X (Version None)
Quarter: 2008Q2

REPORT INFORMATION
  Report Type: 
  Country: None (occurrence: None)
  Receive Date: 20080417
  Receipt Date: 20080404
  Transmission Date: 20081010
  Serious: Yes (Hospitalization)
  Sender: FDA-Public Use
  Company Number: B0515525A

PATIENT
  Age: 56 Year
  Sex: Male

DRUGS (3)
  1. AUGMENTIN '125' [Suspect]
     Dosage: 2G PER DAY
     Route: 048
     Dates: start: 20070716, end: 20070716
  2. DEXTRARINE PHENYLBUTAZONE [Suspect]
     Route: 050
     Dates: start: 20070714, end: 20070715
  3. ROCEPHIN [Suspect]
     Route: 042
     Dates: start: 20070717, end: 20070722

REACTIONS (6)
  - CONDITION AGGRAVATED [None]
  - DERMATITIS EXFOLIATIVE [None]
  - ERYTHEMA [None]
  - PYREXIA [None]
  - RASH PUSTULAR [None]
  - TOXIC SKIN ERUPTION [None]
